FAERS Safety Report 9197271 (Version 1)
Quarter: 2013Q1

REPORT INFORMATION
  Report Type: Spontaneous
  Country: US (occurrence: None)
  Receive Date: 20120709
  Receipt Date: 20120709
  Transmission Date: 20140127
  Serious: No
  Sender: FDA-Public Use
  Company Number: 2012HGS-003584

PATIENT
  Age: 58 Year
  Sex: Female
  Weight: 62.6 kg

DRUGS (2)
  1. BENLYSTA [Suspect]
     Indication: SYSTEMIC LUPUS ERYTHEMATOSUS
     Dosage: 1 IN 28 D
     Route: 041
  2. PRENISONE (PREDNISONE) (PREDNISONE) [Concomitant]

REACTIONS (1)
  - Stomatitis [None]
